FAERS Safety Report 9286370 (Version 4)
Quarter: 2013Q2

REPORT INFORMATION
  Report Type: Spontaneous
  Country: JP (occurrence: JP)
  Receive Date: 20130513
  Receipt Date: 20130531
  Transmission Date: 20140414
  Serious: Yes (Death, Hospitalization)
  Sender: FDA-Public Use
  Company Number: JP-PFIZER INC-2013143340

PATIENT
  Age: 69 Year
  Sex: Male
  Weight: 74 kg

DRUGS (6)
  1. ENALAPRIL MALEATE [Suspect]
     Dosage: 2.5 MG, UNK
  2. ALDACTONE A [Suspect]
     Indication: CARDIAC FAILURE CHRONIC
     Dosage: 25 MG, UNK
     Route: 048
  3. SOTALOL [Suspect]
     Dosage: 80 MG, UNK
  4. APRINDINE [Suspect]
     Dosage: 40 MG, UNK
  5. ASPIRIN [Suspect]
     Dosage: 100 MG, UNK
  6. WARFARIN [Suspect]
     Dosage: 1.5 MG, UNK

REACTIONS (3)
  - Cardio-respiratory arrest [Fatal]
  - Syncope [Unknown]
  - Dizziness [Unknown]
